FAERS Safety Report 8454862-1 (Version None)
Quarter: 2012Q2

REPORT INFORMATION
  Report Type: 
  Country: None (occurrence: None)
  Receive Date: 20120621
  Receipt Date: 20120612
  Transmission Date: 20120825
  Serious: Yes (Other)
  Sender: FDA-Public Use
  Company Number: US-JNJFOC-20120202791

PATIENT
  Sex: Female
  Weight: 63.5 kg

DRUGS (2)
  1. SORIATANE [Concomitant]
     Indication: PSORIASIS
     Route: 048
  2. STELARA [Suspect]
     Indication: PSORIASIS
     Dosage: TOTAL NUMBER OF INJECTION PATIENT RECEIVED: 10
     Route: 058
     Dates: start: 20091215, end: 20120111

REACTIONS (1)
  - NON-HODGKIN'S LYMPHOMA [None]
